FAERS Safety Report 5362896-9 (Version None)
Quarter: 2007Q2

REPORT INFORMATION
  Report Type: 
  Country: None (occurrence: None)
  Receive Date: 20070530
  Receipt Date: 20070321
  Transmission Date: 20071010
  Serious: No
  Sender: FDA-Public Use
  Company Number: 2007PV032601

PATIENT
  Sex: Male

DRUGS (1)
  1. BYETTA [Suspect]
     Indication: DIABETES MELLITUS NON-INSULIN-DEPENDENT
     Dates: start: 20050101

REACTIONS (4)
  - ANOREXIA [None]
  - EYE HAEMORRHAGE [None]
  - FEELING ABNORMAL [None]
  - VOMITING [None]
